FAERS Safety Report 4469676-7 (Version None)
Quarter: 2004Q4

REPORT INFORMATION
  Report Type: 
  Country: None (occurrence: None)
  Receive Date: 20041008
  Receipt Date: 20040930
  Transmission Date: 20050328
  Serious: Yes (Hospitalization)
  Sender: FDA-Public Use
  Company Number: TH-MERCK-0409THA00022

PATIENT
  Age: 75 Year
  Sex: Male

DRUGS (8)
  1. ACETAMINOPHEN AND ORPHENADRINE CITRATE [Concomitant]
     Route: 048
     Dates: start: 20040618, end: 20040618
  2. ATENOLOL [Concomitant]
     Route: 048
     Dates: start: 20040617
  3. ATORVASTATIN CALCIUM [Concomitant]
     Route: 048
     Dates: start: 20040617
  4. NIFEDIPINE [Concomitant]
     Route: 048
     Dates: start: 20040617
  5. ONDANSETRON HYDROCHLORIDE [Concomitant]
     Route: 042
     Dates: start: 20040617
  6. PHENYTOIN [Concomitant]
     Route: 048
     Dates: start: 20040619
  7. VIOXX [Suspect]
     Indication: SPONDYLOSIS
     Route: 048
     Dates: start: 20040618, end: 20040619
  8. VIOXX [Suspect]
     Indication: CERVICAL CORD COMPRESSION
     Route: 048
     Dates: start: 20040618, end: 20040619

REACTIONS (1)
  - RASH [None]
